FAERS Safety Report 21450119 (Version 1)
Quarter: 2022Q4

REPORT INFORMATION
  Report Type: Spontaneous
  Country: US (occurrence: US)
  Receive Date: 20221013
  Receipt Date: 20221013
  Transmission Date: 20230112
  Serious: No
  Sender: FDA-Public Use
  Company Number: US-NEUROCRINE BIOSCIENCES INC.-2022NBI06987

PATIENT

DRUGS (6)
  1. INGREZZA [Suspect]
     Active Substance: VALBENAZINE
     Indication: Tardive dyskinesia
     Dosage: 80 MILLIGRAM
     Route: 065
  2. INGREZZA [Suspect]
     Active Substance: VALBENAZINE
     Dosage: 40 MILLIGRAM
     Route: 065
  3. DEUTETRABENAZINE [Concomitant]
     Active Substance: DEUTETRABENAZINE
     Dosage: 48 MILLIGRAM, QD
     Route: 065
  4. DEUTETRABENAZINE [Concomitant]
     Active Substance: DEUTETRABENAZINE
     Dosage: 24 MILLIGRAM, QD
     Route: 065
  5. PAXIL [Concomitant]
     Active Substance: PAROXETINE HYDROCHLORIDE
  6. REMERON [Concomitant]
     Active Substance: MIRTAZAPINE

REACTIONS (3)
  - Tardive dyskinesia [Not Recovered/Not Resolved]
  - Somnolence [Recovering/Resolving]
  - Therapeutic product effect decreased [Unknown]
